FAERS Safety Report 11194210 (Version 4)
Quarter: 2015Q3

REPORT INFORMATION
  Report Type: Report from Study
  Country: US (occurrence: US)
  Receive Date: 20150616
  Receipt Date: 20150911
  Transmission Date: 20151125
  Serious: Yes (Other)
  Sender: FDA-Public Use
  Company Number: US-ALEXION PHARMACEUTICALS INC.-A201502098

PATIENT

DRUGS (3)
  1. SOLIRIS [Suspect]
     Active Substance: ECULIZUMAB
     Indication: PAROXYSMAL NOCTURNAL HAEMOGLOBINURIA
     Dosage: UNK
     Route: 042
  2. LOVENOX [Concomitant]
     Active Substance: ENOXAPARIN SODIUM
     Indication: PRODUCT USED FOR UNKNOWN INDICATION
     Dosage: UNK
     Route: 065
  3. COUMADIN [Concomitant]
     Active Substance: WARFARIN SODIUM
     Indication: PRODUCT USED FOR UNKNOWN INDICATION
     Dosage: UNK
     Route: 065

REACTIONS (16)
  - Gastrointestinal infection [Unknown]
  - Cerebrovascular accident [Recovering/Resolving]
  - Vomiting [Unknown]
  - Muscular weakness [Unknown]
  - International normalised ratio abnormal [Unknown]
  - Haemoglobin abnormal [Unknown]
  - Platelet count decreased [Unknown]
  - Haematocrit abnormal [Unknown]
  - Blood creatinine abnormal [Unknown]
  - Fatigue [Unknown]
  - Abdominal pain [Unknown]
  - Platelet count abnormal [Unknown]
  - Asthenia [Recovering/Resolving]
  - Blood urea abnormal [Unknown]
  - Anxiety [Recovering/Resolving]
  - Nausea [Unknown]

NARRATIVE: CASE EVENT DATE: 20150601
